FAERS Safety Report 9696929 (Version 2)
Quarter: 2013Q4

REPORT INFORMATION
  Report Type: Spontaneous
  Country: US (occurrence: US)
  Receive Date: 20131119
  Receipt Date: 20131119
  Transmission Date: 20140711
  Serious: No
  Sender: FDA-Public Use
  Company Number: US-GILEAD-2007-0013904

PATIENT
  Age: 72 Year
  Sex: Female

DRUGS (6)
  1. LETAIRIS [Suspect]
     Indication: PULMONARY HYPERTENSION
     Route: 048
     Dates: start: 20070829, end: 20071010
  2. COUMADIN [Concomitant]
     Route: 048
  3. PROCARDIA XL [Concomitant]
     Route: 048
  4. AMBIEN [Concomitant]
     Route: 048
  5. LEXAPRO [Concomitant]
     Route: 048
  6. EXOXAC [Concomitant]
     Route: 048

REACTIONS (3)
  - Wheezing [Recovered/Resolved]
  - Unevaluable event [Recovered/Resolved]
  - Dyspnoea [Recovered/Resolved]
